FAERS Safety Report 23067155 (Version 1)
Quarter: 2023Q4

REPORT INFORMATION
  Report Type: Spontaneous
  Country: ES (occurrence: ES)
  Receive Date: 20231016
  Receipt Date: 20231016
  Transmission Date: 20240110
  Serious: Yes (Hospitalization)
  Sender: FDA-Public Use
  Company Number: None

PATIENT
  Age: 34 Year
  Sex: Male

DRUGS (1)
  1. KESIMPTA [Suspect]
     Active Substance: OFATUMUMAB
     Indication: Multiple sclerosis
     Dosage: 60 MG
     Route: 058
     Dates: start: 20230614, end: 20230628

REACTIONS (4)
  - Acute kidney injury [Recovered/Resolved]
  - Hepatic lesion [Recovered/Resolved]
  - Cholestasis [Recovered/Resolved]
  - Genitourinary tract infection [Recovered/Resolved]

NARRATIVE: CASE EVENT DATE: 20230630
